FAERS Safety Report 4296436-2 (Version None)
Quarter: 2004Q1

REPORT INFORMATION
  Report Type: 
  Country: None (occurrence: None)
  Receive Date: 20040115
  Receipt Date: 20031112
  Transmission Date: 20041129
  Serious: No
  Sender: FDA-Public Use
  Company Number: 200310710BCA

PATIENT
  Age: 98 Year
  Sex: Female

DRUGS (2)
  1. GAMIMUNE N 10% [Suspect]
     Dosage: 5 G, TOTAL DAILY
     Route: 042
     Dates: start: 20030525
  2. GAMIMUNE N 10% [Suspect]
     Dosage: 2.5 G, TOTAL DAILY
     Route: 042
     Dates: start: 20030525

REACTIONS (1)
  - PYREXIA [None]
